FAERS Safety Report 21666588 (Version 2)
Quarter: 2023Q2

REPORT INFORMATION
  Report Type: Report from Study
  Country: DE (occurrence: DE)
  Receive Date: 20221201
  Receipt Date: 20230628
  Transmission Date: 20230721
  Serious: Yes (Hospitalization)
  Sender: FDA-Public Use
  Company Number: DE-SAMSUNG BIOEPIS-SB-2022-30388

PATIENT
  Age: 67 Year
  Sex: Female
  Weight: 93 kg

DRUGS (2)
  1. IMRALDI [Suspect]
     Active Substance: ADALIMUMAB
     Indication: Psoriasis
     Route: 058
     Dates: start: 20191121, end: 20210824
  2. IMRALDI [Suspect]
     Active Substance: ADALIMUMAB
     Indication: Psoriatic arthropathy

REACTIONS (20)
  - Pneumococcal sepsis [Recovered/Resolved]
  - Pneumonia [Recovered/Resolved]
  - Acute kidney injury [Recovered/Resolved]
  - Aortic arteriosclerosis [Not Recovered/Not Resolved]
  - Goitre [Unknown]
  - Arteriosclerosis coronary artery [Not Recovered/Not Resolved]
  - Pyelocaliectasis [Not Recovered/Not Resolved]
  - Troponin increased [Recovered/Resolved]
  - Anaemia vitamin B12 deficiency [Recovered/Resolved]
  - Sinus tachycardia [Unknown]
  - Hepatic steatosis [Recovered/Resolved]
  - Pleural effusion [Recovered/Resolved]
  - Spinal osteoarthritis [Unknown]
  - Left ventricular hypertrophy [Recovered/Resolved]
  - Diverticulum intestinal [Unknown]
  - Chronic obstructive pulmonary disease [Unknown]
  - Cardiomegaly [Unknown]
  - Peripheral embolism [Unknown]
  - Thyroid calcification [Unknown]
  - Coronary artery disease [Unknown]

NARRATIVE: CASE EVENT DATE: 20210726
